FAERS Safety Report 18395838 (Version 6)
Quarter: 2021Q3

REPORT INFORMATION
  Report Type: Spontaneous
  Country: US (occurrence: US)
  Receive Date: 20201018
  Receipt Date: 20210712
  Transmission Date: 20211014
  Serious: Yes (Other)
  Sender: FDA-Public Use
  Company Number: US-GLAXOSMITHKLINE-US2020AMR202076

PATIENT
  Sex: Female

DRUGS (4)
  1. ZEJULA [Suspect]
     Active Substance: NIRAPARIB
     Indication: OVARIAN CANCER
     Dosage: 200 MG, QD
     Route: 048
     Dates: start: 20200825
  2. ZEJULA [Suspect]
     Active Substance: NIRAPARIB
     Dosage: 200 MG, QD (QPM)
     Dates: start: 20200922
  3. ZEJULA [Suspect]
     Active Substance: NIRAPARIB
     Dosage: 100 MG, QD
  4. ZEJULA [Suspect]
     Active Substance: NIRAPARIB
     Dosage: 100 MG, QD
     Route: 048

REACTIONS (10)
  - Ovarian cancer recurrent [Unknown]
  - Metastases to lung [Unknown]
  - Fatigue [Unknown]
  - Platelet count decreased [Unknown]
  - Blood pressure increased [Unknown]
  - Nausea [Unknown]
  - Carbohydrate antigen 125 increased [Unknown]
  - Laboratory test abnormal [Unknown]
  - Ovarian cancer metastatic [Unknown]
  - Psychomotor hyperactivity [Recovering/Resolving]
